FAERS Safety Report 14374546 (Version 3)
Quarter: 2020Q2

REPORT INFORMATION
  Report Type: Spontaneous
  Country: GB (occurrence: GB)
  Receive Date: 20180111
  Receipt Date: 20200426
  Transmission Date: 20200713
  Serious: Yes (Hospitalization, Other)
  Sender: FDA-Public Use
  Company Number: GB-AUROBINDO-AUR-APL-2018-001407

PATIENT
  Age: 19 Year
  Sex: Female

DRUGS (7)
  1. CLARITHROMYCIN FILM-COATED TABLET [Suspect]
     Active Substance: CLARITHROMYCIN
     Indication: SEPSIS
  2. TEICOPLANIN [Suspect]
     Active Substance: TEICOPLANIN
     Indication: SEPSIS
  3. CLINDAMYCIN. [Suspect]
     Active Substance: CLINDAMYCIN
     Indication: BETA HAEMOLYTIC STREPTOCOCCAL INFECTION
     Dosage: UNK
     Route: 065
  4. CLINDAMYCIN. [Suspect]
     Active Substance: CLINDAMYCIN
     Indication: SEPSIS
  5. PIPERACILLIN AND TAZOBACTAM [Suspect]
     Active Substance: PIPERACILLIN SODIUM\TAZOBACTAM SODIUM
     Indication: SEPSIS
     Dosage: UNK
     Route: 065
  6. CLARITHROMYCIN FILM-COATED TABLET [Suspect]
     Active Substance: CLARITHROMYCIN
     Indication: BETA HAEMOLYTIC STREPTOCOCCAL INFECTION
     Dosage: UNK
     Route: 065
  7. TEICOPLANIN [Suspect]
     Active Substance: TEICOPLANIN
     Indication: BETA HAEMOLYTIC STREPTOCOCCAL INFECTION
     Dosage: UNK
     Route: 065

REACTIONS (6)
  - Pancytopenia [Unknown]
  - Drug ineffective [Unknown]
  - Acidosis [Unknown]
  - Exposure during pregnancy [Unknown]
  - Herpes simplex [Recovered/Resolved]
  - Premature delivery [Unknown]
